FAERS Safety Report 10076982 (Version 2)
Quarter: 2014Q2

REPORT INFORMATION
  Report Type: Report from Study
  Country: AU (occurrence: AU)
  Receive Date: 20140414
  Receipt Date: 20140414
  Transmission Date: 20141212
  Serious: Yes (Other)
  Sender: FDA-Public Use
  Company Number: AU-SANOFI-AVENTIS-2013SA092171

PATIENT
  Age: 30 Year
  Sex: Female
  Weight: 79 kg

DRUGS (5)
  1. AUBAGIO [Suspect]
     Indication: RELAPSING-REMITTING MULTIPLE SCLEROSIS
     Route: 048
     Dates: start: 20130616
  2. ZOLOFT [Concomitant]
     Indication: PRODUCT USED FOR UNKNOWN INDICATION
     Route: 065
  3. EPILIM [Concomitant]
     Indication: PRODUCT USED FOR UNKNOWN INDICATION
     Route: 065
  4. ENDEP [Concomitant]
     Indication: PRODUCT USED FOR UNKNOWN INDICATION
     Route: 065
  5. SANDOMIGRAN [Concomitant]
     Indication: PRODUCT USED FOR UNKNOWN INDICATION
     Route: 065

REACTIONS (21)
  - Suicidal ideation [Not Recovered/Not Resolved]
  - Depression [Recovering/Resolving]
  - Poor quality sleep [Recovering/Resolving]
  - Mood swings [Recovering/Resolving]
  - Depressed mood [Recovering/Resolving]
  - Emotional distress [Unknown]
  - Decreased appetite [Unknown]
  - Frequent bowel movements [Unknown]
  - Fatigue [Not Recovered/Not Resolved]
  - Stress [Unknown]
  - Cough [Not Recovered/Not Resolved]
  - Asthenia [Unknown]
  - Postural tremor [Not Recovered/Not Resolved]
  - Tremor [Not Recovered/Not Resolved]
  - Gait disturbance [Unknown]
  - General physical health deterioration [Unknown]
  - Affective disorder [Unknown]
  - Paraesthesia [Unknown]
  - Alopecia [Unknown]
  - Weight decreased [Unknown]
  - Diarrhoea [Recovering/Resolving]
